FAERS Safety Report 6039701-0 (Version None)
Quarter: 2009Q1

REPORT INFORMATION
  Report Type: 
  Country: None (occurrence: None)
  Receive Date: 20090116
  Receipt Date: 20090107
  Transmission Date: 20090719
  Serious: Yes (Other)
  Sender: FDA-Public Use
  Company Number: PHEH2009US00587

PATIENT
  Sex: Female

DRUGS (9)
  1. ZOMETA [Suspect]
     Indication: METASTASES TO BONE
     Dosage: 4 MG IV MONTHLY
     Route: 042
     Dates: start: 20030801, end: 20070801
  2. ZOMETA [Suspect]
     Indication: BREAST CANCER
  3. FEMARA [Concomitant]
     Dosage: UNK
     Dates: start: 20020101, end: 20040101
  4. NAVELBINE [Concomitant]
  5. ARIMIDEX [Concomitant]
  6. AVASTIN [Concomitant]
  7. METOPROLOL TARTRATE [Concomitant]
  8. MEGACE [Concomitant]
  9. LORAZEPAM [Concomitant]

REACTIONS (3)
  - BONE DISORDER [None]
  - OSTEONECROSIS [None]
  - SECRETION DISCHARGE [None]
